FAERS Safety Report 8788640 (Version 2)
Quarter: 2012Q4

REPORT INFORMATION
  Report Type: 
  Country: SG (occurrence: SG)
  Receive Date: 20120916
  Receipt Date: 20120916
  Transmission Date: 20130627
  Serious: Yes (Disabling, Other)
  Sender: FDA-Public Use
  Company Number: PHHY2012SG071199

PATIENT
  Age: 57 Year
  Sex: Female
  Weight: 45.6 kg

DRUGS (1)
  1. FEMARA [Suspect]
     Indication: BREAST CANCER
     Dosage: 2.5 mg, daily
     Route: 048
     Dates: start: 20120602, end: 20120603

REACTIONS (4)
  - Back pain [Recovered/Resolved]
  - Tremor [Unknown]
  - Palpitations [Not Recovered/Not Resolved]
  - Bone pain [Unknown]
